FAERS Safety Report 11641361 (Version 1)
Quarter: 2015Q4

REPORT INFORMATION
  Report Type: Report from Study
  Country: US (occurrence: US)
  Receive Date: 20151019
  Receipt Date: 20151019
  Transmission Date: 20160304
  Serious: Yes (Hospitalization)
  Sender: FDA-Public Use
  Company Number: US-VERTEX PHARMACEUTICALS-2015-002275

PATIENT
  Age: 20 Year
  Sex: Female

DRUGS (7)
  1. CAYSTON [Concomitant]
     Active Substance: AZTREONAM
     Dosage: UNK
     Dates: start: 20131227
  2. TOBI [Concomitant]
     Active Substance: TOBRAMYCIN
     Dosage: 300 MG, UNK
  3. KALYDECO [Suspect]
     Active Substance: IVACAFTOR
     Indication: CYSTIC FIBROSIS
     Dosage: UNK
     Route: 048
     Dates: start: 20130422
  4. KALYDECO [Suspect]
     Active Substance: IVACAFTOR
     Dosage: 150 MG, QD
     Route: 048
     Dates: start: 20131021
  5. KALYDECO [Suspect]
     Active Substance: IVACAFTOR
     Dosage: 150 MG, ONCE A WEEK
     Route: 048
     Dates: start: 20150518
  6. PULMOZYME [Concomitant]
     Active Substance: DORNASE ALFA
  7. KALYDECO [Suspect]
     Active Substance: IVACAFTOR
     Dosage: 150 MG,
     Route: 048
     Dates: start: 20150518

REACTIONS (2)
  - Infection [Unknown]
  - Intentional underdose [Unknown]

NARRATIVE: CASE EVENT DATE: 20150518
